FAERS Safety Report 20582098 (Version 1)
Quarter: 2022Q1

REPORT INFORMATION
  Report Type: Spontaneous
  Country: CA (occurrence: CA)
  Receive Date: 20220311
  Receipt Date: 20220311
  Transmission Date: 20220424
  Serious: Yes (Other)
  Sender: FDA-Public Use
  Company Number: None

PATIENT
  Age: 65 Year
  Sex: Female

DRUGS (1)
  1. ROSUVASTATIN CALCIUM [Suspect]
     Active Substance: ROSUVASTATIN CALCIUM
     Indication: Blood cholesterol
     Dosage: 1 EVERY 1 DAYS
     Route: 048

REACTIONS (4)
  - Lacrimation increased [Recovered/Resolved]
  - Oropharyngeal discomfort [Recovered/Resolved]
  - Rhinorrhoea [Recovered/Resolved]
  - SARS-CoV-2 test negative [Unknown]
